FAERS Safety Report 7878583-9 (Version None)
Quarter: 2011Q4

REPORT INFORMATION
  Report Type: 
  Country: None (occurrence: None)
  Receive Date: 20111101
  Receipt Date: 20111101
  Transmission Date: 20120403
  Serious: Yes (Hospitalization)
  Sender: FDA-Public Use
  Company Number: None

PATIENT
  Age: 83 Year
  Sex: Female
  Weight: 79.832 kg

DRUGS (12)
  1. METOPROLOL SUCCINATE EXTENDED RELEASE [Concomitant]
     Route: 048
  2. OMEPRAZOLE [Concomitant]
     Route: 048
  3. CALCIUM CARBONATE [Concomitant]
     Route: 048
  4. AMBIEN [Concomitant]
     Route: 048
  5. TRAVATAN Z [Concomitant]
     Route: 047
  6. LEXAPRO [Concomitant]
     Route: 048
  7. HYDRALAZINE HCL [Concomitant]
     Route: 048
  8. MEGESTROL ACETATE [Suspect]
     Indication: APPETITE DISORDER
     Dosage: 800MG
     Route: 048
     Dates: start: 20110726, end: 20110909
  9. IRON SULFATETHIAMIN COMPOUND TAB [Concomitant]
     Route: 048
  10. COLACE [Concomitant]
     Route: 048
  11. BENTYL [Concomitant]
     Route: 048
  12. MULTIPLE VITAMIN TABLET [Concomitant]
     Route: 048

REACTIONS (1)
  - DEEP VEIN THROMBOSIS [None]
